FAERS Safety Report 15852557 (Version 1)
Quarter: 2019Q1

REPORT INFORMATION
  Report Type: Spontaneous
  Country: HU (occurrence: HU)
  Receive Date: 20190122
  Receipt Date: 20190122
  Transmission Date: 20190417
  Serious: Yes (Death)
  Sender: FDA-Public Use
  Company Number: HU-ACTELION-A-CH2019-184927

PATIENT
  Age: 46 Year
  Sex: Male
  Weight: 77.5 kg

DRUGS (2)
  1. OPSUMIT [Suspect]
     Active Substance: MACITENTAN
     Indication: PULMONARY ARTERIAL HYPERTENSION
     Dosage: 10 MG, OD
     Route: 048
     Dates: start: 20160913, end: 20181223
  2. REVATIO [Concomitant]
     Active Substance: SILDENAFIL CITRATE
     Indication: PULMONARY ARTERIAL HYPERTENSION
     Dosage: 20 MG, TID
     Route: 048
     Dates: start: 20110506, end: 20181223

REACTIONS (2)
  - Anuria [Fatal]
  - Right ventricular failure [Fatal]
